FAERS Safety Report 5659441-7 (Version None)
Quarter: 2008Q1

REPORT INFORMATION
  Report Type: 
  Country: None (occurrence: None)
  Receive Date: 20080307
  Receipt Date: 20080307
  Transmission Date: 20080703
  Serious: No
  Sender: FDA-Public Use
  Company Number: None

PATIENT
  Sex: Female
  Weight: 55.3388 kg

DRUGS (2)
  1. CHANTIX [Suspect]
     Dosage: 1MG  QD  ORAL
     Route: 048
     Dates: start: 20071201
  2. CHANTIX [Suspect]
     Dosage: 1MG  QD  ORAL
     Route: 048
     Dates: start: 20080201

REACTIONS (1)
  - ABNORMAL DREAMS [None]
